FAERS Safety Report 8771145 (Version 1)
Quarter: 2012Q4

REPORT INFORMATION
  Report Type: Report from Study
  Country: US (occurrence: US)
  Receive Date: 20120906
  Receipt Date: 20120906
  Transmission Date: 20130627
  Serious: Yes (Death, Other)
  Sender: FDA-Public Use
  Company Number: US-ROCHE-1108834

PATIENT
  Age: 75 None
  Sex: Female
  Weight: 88.98 kg

DRUGS (1)
  1. XELODA [Suspect]
     Indication: BREAST CANCER METASTATIC
     Dosage: 2 Pills BID
     Route: 048
     Dates: start: 201206

REACTIONS (6)
  - Death [Fatal]
  - Hepatic failure [Not Recovered/Not Resolved]
  - Diarrhoea [Not Recovered/Not Resolved]
  - Palmar-plantar erythrodysaesthesia syndrome [Not Recovered/Not Resolved]
  - Abdominal cavity drainage [Unknown]
  - Joint swelling [Unknown]
